FAERS Safety Report 8507768 (Version 2)
Quarter: 2013Q1

REPORT INFORMATION
  Report Type: Spontaneous
  Country: US (occurrence: US)
  Receive Date: 20120412
  Receipt Date: 20130325
  Transmission Date: 20140127
  Serious: No
  Sender: FDA-Public Use
  Company Number: US-ASTRAZENECA-2011SE58410

PATIENT
  Age: 64 Year
  Sex: Female

DRUGS (2)
  1. NEXIUM [Suspect]
     Route: 048
  2. CAPRELSA [Suspect]
     Indication: THYROID CANCER
     Route: 048

REACTIONS (2)
  - Blood pressure increased [Unknown]
  - Cardiac disorder [Unknown]
